FAERS Safety Report 16016901 (Version 3)
Quarter: 2019Q2

REPORT INFORMATION
  Report Type: Spontaneous
  Country: US (occurrence: US)
  Receive Date: 20190228
  Receipt Date: 20190530
  Transmission Date: 20190711
  Serious: No
  Sender: FDA-Public Use
  Company Number: US-PFIZER INC-2019079890

PATIENT
  Age: 48 Year
  Sex: Female
  Weight: 68.49 kg

DRUGS (3)
  1. GABAPENTIN. [Suspect]
     Active Substance: GABAPENTIN
     Indication: PARAESTHESIA
  2. GABAPENTIN. [Suspect]
     Active Substance: GABAPENTIN
     Indication: NEUROPATHY PERIPHERAL
     Dosage: 800 MG, THREE TIMES A DAY
     Route: 048
     Dates: start: 20190206
  3. GABAPENTIN. [Suspect]
     Active Substance: GABAPENTIN
     Indication: PAIN

REACTIONS (3)
  - Off label use [Unknown]
  - Muscle spasms [Unknown]
  - Drug ineffective for unapproved indication [Unknown]
